FAERS Safety Report 6018177-3 (Version None)
Quarter: 2008Q4

REPORT INFORMATION
  Report Type: 
  Country: None (occurrence: None)
  Receive Date: 20081223
  Receipt Date: 20081211
  Transmission Date: 20090506
  Serious: Yes (Other)
  Sender: FDA-Public Use
  Company Number: PHHY2008GB30952

PATIENT
  Sex: Male

DRUGS (1)
  1. GLEEVEC [Suspect]
     Indication: CHRONIC MYELOID LEUKAEMIA
     Dosage: 600MG
     Dates: start: 20050727

REACTIONS (3)
  - DISEASE PROGRESSION [None]
  - MENTAL DISORDER [None]
  - TREATMENT NONCOMPLIANCE [None]
